FAERS Safety Report 6831758-X (Version None)
Quarter: 2010Q3

REPORT INFORMATION
  Report Type: 
  Country: None (occurrence: None)
  Receive Date: 20100706
  Receipt Date: 20100629
  Transmission Date: 20110219
  Serious: Yes (Other)
  Sender: FDA-Public Use
  Company Number: 2009SP023808

PATIENT
  Age: 66 Year
  Sex: Female

DRUGS (9)
  1. INTRON A [Suspect]
     Indication: MALIGNANT MELANOMA
     Dosage: 40 MIU;IV; 30 MIU; IV;  20 MIU; IV;  15 MIU;TIW
     Route: 042
     Dates: start: 20090810, end: 20090816
  2. INTRON A [Suspect]
     Indication: MALIGNANT MELANOMA
     Dosage: 40 MIU;IV; 30 MIU; IV;  20 MIU; IV;  15 MIU;TIW
     Route: 042
     Dates: start: 20090824, end: 20091012
  3. INTRON A [Suspect]
     Indication: MALIGNANT MELANOMA
     Dosage: 40 MIU;IV; 30 MIU; IV;  20 MIU; IV;  15 MIU;TIW
     Route: 042
     Dates: start: 20091109, end: 20100525
  4. INTRON A [Suspect]
     Indication: MALIGNANT MELANOMA
     Dosage: 40 MIU;IV; 30 MIU; IV;  20 MIU; IV;  15 MIU;TIW
     Route: 042
     Dates: start: 20090706
  5. INTRON A [Suspect]
     Indication: MALIGNANT MELANOMA
     Dosage: 40 MIU;IV; 30 MIU; IV;  20 MIU; IV;  15 MIU;TIW
     Route: 042
     Dates: start: 20090727
  6. EFFEXOR XR [Concomitant]
  7. AVANZA (MIRTAZAPINE) [Concomitant]
  8. PROCHLORPERAZINE MALEATE [Concomitant]
  9. PROCHLORPERAZINE MESILATE [Concomitant]

REACTIONS (25)
  - ALOPECIA [None]
  - CHILLS [None]
  - DIARRHOEA [None]
  - DIZZINESS [None]
  - DRY MOUTH [None]
  - DYSGEUSIA [None]
  - FALL [None]
  - FATIGUE [None]
  - GAIT DISTURBANCE [None]
  - HEADACHE [None]
  - HEPATITIS [None]
  - HYPERHIDROSIS [None]
  - MUSCULOSKELETAL DISORDER [None]
  - NAUSEA [None]
  - ORTHOSTATIC HYPOTENSION [None]
  - PAIN [None]
  - PIGMENTATION DISORDER [None]
  - PLATELET COUNT INCREASED [None]
  - PYREXIA [None]
  - RASH [None]
  - RED BLOOD CELL COUNT DECREASED [None]
  - SKIN EXFOLIATION [None]
  - VERTIGO [None]
  - VOMITING [None]
  - WHITE BLOOD CELL COUNT DECREASED [None]
